FAERS Safety Report 16484120 (Version 1)
Quarter: 2019Q3

REPORT INFORMATION
  Report Type: Spontaneous
  Country: US (occurrence: US)
  Receive Date: 20190625
  Receipt Date: 20190625
  Transmission Date: 20191004
  Serious: Yes (Hospitalization)
  Sender: FDA-Public Use
  Company Number: None

PATIENT
  Age: 68 Year
  Sex: Female

DRUGS (12)
  1. ENBREL [Suspect]
     Active Substance: ETANERCEPT
     Indication: RHEUMATOID ARTHRITIS
     Dosage: ?          OTHER FREQUENCY:WEEKLY;?
     Route: 058
     Dates: start: 20170822, end: 20190624
  2. METAXALONE TAB 800 MG [Concomitant]
  3. AMOX/CLAV TAB 875-125 [Concomitant]
  4. ONDANSETRON TAB 4 MG [Concomitant]
  5. VITAMIN D CAP 50000 UNT [Concomitant]
  6. TRAMADOL HCL TAB 50 MG [Concomitant]
  7. PREDNISONE TAB 5 MG [Concomitant]
  8. PAZEO DRO 0.7% [Concomitant]
  9. MUPIROCIN OIN 2% [Concomitant]
  10. CLOPIDIGREL TAB 75 MG [Concomitant]
  11. OXYBUTYNIN TAB 5 MG [Concomitant]
  12. ATORVASTATIN TAB 20 MG [Concomitant]

REACTIONS (4)
  - Drug ineffective [None]
  - Hip arthroplasty [None]
  - Therapy cessation [None]
  - Condition aggravated [None]
